FAERS Safety Report 7706364-5 (Version None)
Quarter: 2011Q3

REPORT INFORMATION
  Report Type: 
  Country: None (occurrence: None)
  Receive Date: 20110824
  Receipt Date: 20110819
  Transmission Date: 20111222
  Serious: Yes (Other)
  Sender: FDA-Public Use
  Company Number: US-PFIZER INC-2011192587

PATIENT
  Sex: Female
  Weight: 81 kg

DRUGS (4)
  1. LATANOPROST [Suspect]
  2. XALATAN [Suspect]
     Indication: EYE DISORDER
     Dosage: ONE DROP IN EACH EYE ONCE A DAY
     Route: 047
  3. XALATAN [Suspect]
     Indication: GLAUCOMA
  4. RAMIPRIL [Concomitant]
     Indication: HYPERTENSION
     Dosage: UNK

REACTIONS (1)
  - ARTHRITIS [None]
